FAERS Safety Report 14097412 (Version 3)
Quarter: 2017Q4

REPORT INFORMATION
  Report Type: Spontaneous
  Country: DE (occurrence: DE)
  Receive Date: 20171016
  Receipt Date: 20171222
  Transmission Date: 20180321
  Serious: Yes (Hospitalization, Other)
  Sender: FDA-Public Use
  Company Number: DE-EXELIXIS-CABO-17010825

PATIENT
  Age: 55 Year
  Sex: Male
  Weight: 117 kg

DRUGS (2)
  1. CABOMETYX [Suspect]
     Active Substance: CABOZANTINIB S-MALATE
     Indication: RENAL CELL CARCINOMA
     Dosage: 40 MG, QD
     Route: 048
     Dates: start: 20170420, end: 20170502
  2. CABOMETYX [Suspect]
     Active Substance: CABOZANTINIB S-MALATE
     Dosage: 40 MG, QD
     Route: 048
     Dates: start: 20170603

REACTIONS (5)
  - Blindness [Unknown]
  - Malignant neoplasm progression [Unknown]
  - Eye pain [Unknown]
  - Fear [Unknown]
  - Ocular neoplasm [Unknown]

NARRATIVE: CASE EVENT DATE: 20170503
